FAERS Safety Report 13611291 (Version 1)
Quarter: 2017Q2

REPORT INFORMATION
  Report Type: Spontaneous
  Country: DE (occurrence: DE)
  Receive Date: 20170605
  Receipt Date: 20170605
  Transmission Date: 20170830
  Serious: Yes (Other)
  Sender: FDA-Public Use
  Company Number: DE-PFIZER INC-2017237325

PATIENT
  Age: 47 Year
  Sex: Male

DRUGS (8)
  1. VALDOXAN [Suspect]
     Active Substance: AGOMELATINE
     Dosage: 50 MG, 1X/DAY
     Route: 048
     Dates: start: 20170102, end: 20170125
  2. VALDOXAN [Suspect]
     Active Substance: AGOMELATINE
     Dosage: 25 MG, 1X/DAY
     Route: 048
     Dates: start: 20161214, end: 20170101
  3. VENLAFAXINE HCL [Suspect]
     Active Substance: VENLAFAXINE HYDROCHLORIDE
     Dosage: 150 MG, 1X/DAY
     Route: 048
     Dates: start: 20170201, end: 20170206
  4. VENLAFAXINE HCL [Suspect]
     Active Substance: VENLAFAXINE HYDROCHLORIDE
     Dosage: 75 MG, 1X/DAY
     Route: 048
     Dates: start: 20170207, end: 20170220
  5. VENLAFAXINE HCL [Suspect]
     Active Substance: VENLAFAXINE HYDROCHLORIDE
     Dosage: 37.5 MG, 1X/DAY
     Route: 048
     Dates: start: 20170221, end: 20170327
  6. QUETIAPINE RETARD [Concomitant]
     Active Substance: QUETIAPINE
     Dosage: 200 MG, 1X/DAY
     Route: 048
     Dates: start: 20160926
  7. VALDOXAN [Suspect]
     Active Substance: AGOMELATINE
     Dosage: 25 MG, 1X/DAY
     Route: 048
     Dates: start: 20170126, end: 20170131
  8. VENLAFAXINE HCL [Suspect]
     Active Substance: VENLAFAXINE HYDROCHLORIDE
     Dosage: 300 MG, 1X/DAY
     Route: 048
     Dates: start: 20161017, end: 20170131

REACTIONS (1)
  - Eosinophilia [Recovered/Resolved]

NARRATIVE: CASE EVENT DATE: 20170125
